FAERS Safety Report 10488213 (Version 3)
Quarter: 2016Q3

REPORT INFORMATION
  Report Type: Spontaneous
  Country: FR (occurrence: FR)
  Receive Date: 20141002
  Receipt Date: 20160920
  Transmission Date: 20161109
  Serious: Yes (Hospitalization, Other)
  Sender: FDA-Public Use
  Company Number: FR-ACCORD-026196

PATIENT
  Age: 73 Year
  Sex: Male
  Weight: 65 kg

DRUGS (2)
  1. GEMCITABINE ACCORD [Suspect]
     Active Substance: GEMCITABINE HYDROCHLORIDE
     Indication: PRODUCT USED FOR UNKNOWN INDICATION
     Dosage: THIRD COURSE
     Route: 042
     Dates: start: 20140430
  2. CISPLATIN MYLAN [Suspect]
     Active Substance: CISPLATIN
     Indication: PRODUCT USED FOR UNKNOWN INDICATION
     Dosage: THIRD COURSE
     Route: 042
     Dates: start: 20140430, end: 20140507

REACTIONS (6)
  - Anaemia [Recovered/Resolved]
  - Gastrooesophageal reflux disease [Recovered/Resolved]
  - Hyperkalaemia [Recovered/Resolved]
  - Nausea [Recovered/Resolved]
  - Thrombocytopenia [Recovered/Resolved]
  - Epistaxis [Recovered/Resolved]

NARRATIVE: CASE EVENT DATE: 201405
